FAERS Safety Report 5409535-6 (Version None)
Quarter: 2007Q3

REPORT INFORMATION
  Report Type: 
  Country: None (occurrence: None)
  Receive Date: 20070807
  Receipt Date: 20070726
  Transmission Date: 20080115
  Serious: Yes (Hospitalization)
  Sender: FDA-Public Use
  Company Number: 2007BI006533

PATIENT
  Sex: Female
  Weight: 92.0802 kg

DRUGS (1)
  1. NATALIZUMAB [Suspect]
     Indication: MULTIPLE SCLEROSIS
     Dosage: 300 MG; QM; IV
     Route: 042
     Dates: start: 20061113

REACTIONS (6)
  - HYPOTENSION [None]
  - INTERVERTEBRAL DISC PROTRUSION [None]
  - PROCEDURAL COMPLICATION [None]
  - PULMONARY OEDEMA [None]
  - URINARY TRACT INFECTION [None]
  - WOUND INFECTION [None]
